FAERS Safety Report 24136853 (Version 1)
Quarter: 2024Q3

REPORT INFORMATION
  Report Type: Spontaneous
  Country: BG (occurrence: BG)
  Receive Date: 20240725
  Receipt Date: 20240725
  Transmission Date: 20241017
  Serious: Yes (Life-Threatening, Hospitalization, Other)
  Sender: GRANULES INDIA
  Company Number: BG-GRANULES-BG-2024GRALIT00293

PATIENT
  Sex: Female

DRUGS (2)
  1. SERTRALINE HYDROCHLORIDE [Suspect]
     Active Substance: SERTRALINE HYDROCHLORIDE
     Indication: Foetal exposure during pregnancy
     Route: 064
  2. LAMOTRIGINE [Concomitant]
     Active Substance: LAMOTRIGINE
     Indication: Foetal exposure during pregnancy
     Route: 064

REACTIONS (4)
  - Ductus arteriosus premature closure [Recovered/Resolved]
  - Respiratory failure [Recovered/Resolved]
  - Cardiomegaly [Recovered/Resolved]
  - Foetal exposure during pregnancy [Unknown]
